FAERS Safety Report 6994348-4 (Version None)
Quarter: 2010Q3

REPORT INFORMATION
  Report Type: 
  Country: None (occurrence: None)
  Receive Date: 20100917
  Receipt Date: 20100819
  Transmission Date: 20110219
  Serious: No
  Sender: FDA-Public Use
  Company Number: US-PFIZER INC-2010086970

PATIENT
  Sex: Female
  Weight: 45.351 kg

DRUGS (9)
  1. XALATAN [Suspect]
     Indication: GLAUCOMA
     Dosage: ONE DROP, EACH EYE, 1X/DAY
     Route: 047
  2. TIMOLOL MALEATE [Suspect]
     Route: 047
  3. CODEINE W/GUAIFENESIN [Concomitant]
     Indication: COUGH
     Dosage: UNK
  4. PSEUDOEPHEDRINE HCL W/GUAIFENESIN [Concomitant]
     Indication: COUGH
     Dosage: 2X/DAY
  5. ATENOLOL [Concomitant]
     Indication: HYPERTENSION
     Dosage: UNK
  6. LIPITOR [Concomitant]
     Indication: BLOOD CHOLESTEROL INCREASED
     Dosage: UNK
  7. ZOLOFT [Concomitant]
     Dosage: UNK
  8. CELEBREX [Concomitant]
     Dosage: UNK
  9. NASAL SALINE [Concomitant]
     Dosage: UNK

REACTIONS (3)
  - COUGH [None]
  - EYE PAIN [None]
  - NASOPHARYNGITIS [None]
